FAERS Safety Report 5011855-4 (Version None)
Quarter: 2006Q2

REPORT INFORMATION
  Report Type: 
  Country: None (occurrence: None)
  Receive Date: 20060526
  Receipt Date: 20060403
  Transmission Date: 20061013
  Serious: Yes (Other)
  Sender: FDA-Public Use
  Company Number: US-SANOFI-SYNTHELABO-A03200601981

PATIENT
  Sex: Male

DRUGS (9)
  1. AMBIEN [Suspect]
     Indication: INSOMNIA
     Route: 048
     Dates: start: 20060327, end: 20060328
  2. VITAMIN B COMPLEX CAP [Concomitant]
     Dosage: UNK
     Route: 048
  3. ASCORBIC ACID [Concomitant]
     Dosage: UNK
     Route: 048
  4. VITAMIN E [Concomitant]
     Dosage: UNK
     Route: 048
  5. HYDROCODONE [Concomitant]
     Dosage: UNK
     Route: 048
  6. DOXYCYCLINE [Concomitant]
     Route: 048
  7. ZOCOR [Concomitant]
     Dosage: UNK
     Route: 048
  8. LOTENSIN [Concomitant]
     Dosage: UNK
     Route: 048
  9. ASPIRIN [Concomitant]
     Route: 048

REACTIONS (2)
  - ROAD TRAFFIC ACCIDENT [None]
  - SOMNOLENCE [None]
